FAERS Safety Report 10199174 (Version 1)
Quarter: 2014Q2

REPORT INFORMATION
  Report Type: Spontaneous
  Country: US (occurrence: US)
  Receive Date: 20140527
  Receipt Date: 20140527
  Transmission Date: 20141212
  Serious: No
  Sender: FDA-Public Use
  Company Number: US-PFIZER INC-2014141930

PATIENT
  Sex: Female

DRUGS (1)
  1. ALPRAZOLAM [Suspect]
     Dosage: UNK

REACTIONS (2)
  - Aphonia [Unknown]
  - Laryngitis [Unknown]
